FAERS Safety Report 5195004-8 (Version None)
Quarter: 2006Q4

REPORT INFORMATION
  Report Type: 
  Country: None (occurrence: None)
  Receive Date: 20061229
  Receipt Date: 20050513
  Transmission Date: 20070319
  Serious: Yes (Other)
  Sender: FDA-Public Use
  Company Number: CH-MERCK-0505CHE00014

PATIENT
  Age: 29 Year
  Sex: Female

DRUGS (1)
  1. NOROXIN [Suspect]
     Indication: CYSTITIS
     Route: 048
     Dates: start: 20050311, end: 20050316

REACTIONS (1)
  - DRUG EXPOSURE DURING PREGNANCY [None]
